FAERS Safety Report 15795781 (Version 1)
Quarter: 2019Q1

REPORT INFORMATION
  Report Type: Spontaneous
  Country: DK (occurrence: DK)
  Receive Date: 20190107
  Receipt Date: 20190107
  Transmission Date: 20190417
  Serious: Yes (Hospitalization)
  Sender: FDA-Public Use
  Company Number: DK-MYLANLABS-2018M1098022

PATIENT
  Age: 72 Year
  Sex: Female

DRUGS (17)
  1. KETOGAN                            /00129101/ [Concomitant]
     Active Substance: KETOBEMIDONE HYDROCHLORIDE
     Indication: PAIN
     Dosage: DOSIS: 0,5-1 TABLET EFTER BEHOV, H?JST 3 GANGE DAGLIG. STYRKE: 5 + 25 MG.
     Route: 048
     Dates: start: 20180531
  2. MIRTAZAPINE. [Concomitant]
     Active Substance: MIRTAZAPINE
     Indication: DEPRESSION
     Dosage: STYRKE: 15 MG.
     Route: 048
     Dates: start: 20160624
  3. BURINEX [Concomitant]
     Active Substance: BUMETANIDE
     Indication: DIURETIC THERAPY
     Dosage: STYRKE: 5 MG.
     Route: 048
     Dates: start: 20170627
  4. KREON [Concomitant]
     Active Substance: PANCRELIPASE
     Indication: ENZYME SUPPLEMENTATION
     Dosage: STYRKE: LIPASE 25000 EP-E.
     Route: 048
     Dates: start: 20180507
  5. ARANESP [Concomitant]
     Active Substance: DARBEPOETIN ALFA
     Indication: ANAEMIA
     Dosage: STYRKE: 40 ?G.
     Dates: start: 20151203
  6. MAREVAN [Concomitant]
     Active Substance: WARFARIN SODIUM
     Indication: ANTICOAGULANT THERAPY
     Dosage: DOSIS: 1 TABLET AFTEN I 4 DAGE. STYRKE: 2,5 MG.
     Route: 048
  7. ANCOZAN [Concomitant]
     Active Substance: LOSARTAN POTASSIUM
     Indication: HYPERTENSION
     Dosage: STYRKE: 100 MG.
     Route: 048
     Dates: start: 20160421
  8. INNOHEP [Concomitant]
     Active Substance: TINZAPARIN SODIUM
     Indication: THROMBOSIS PROPHYLAXIS
     Dosage: STYRKE: 4500 ANTI XA IE.
     Route: 058
     Dates: start: 20150604
  9. PAMOL [Concomitant]
     Active Substance: ACETAMINOPHEN
     Indication: PAIN
     Dosage: DOSIS: 2 TABLETTER EFTER BEHOV, H?JST 4 GANGE DAGLIG. STYRKE: 500 MG.
     Route: 048
  10. ALFACALCIDOL [Concomitant]
     Active Substance: ALFACALCIDOL
     Indication: CALCIUM METABOLISM DISORDER
     Dosage: STYRKE: 0,25 ?G.
     Route: 048
     Dates: start: 20140423
  11. BAKLOFEN ?MYLAN? 10 MG [Suspect]
     Active Substance: BACLOFEN
     Indication: SEIZURE
     Dosage: STYRKE: 10 MG.
     Route: 048
     Dates: start: 20180531, end: 20180609
  12. CALCIUM CARBONATE. [Concomitant]
     Active Substance: CALCIUM CARBONATE
     Indication: BLOOD PHOSPHORUS INCREASED
     Dosage: STYRKE: 450 MG.
     Route: 048
     Dates: start: 20150408
  13. VENOFER [Concomitant]
     Active Substance: IRON SUCROSE
     Indication: IRON DEFICIENCY
     Dosage: DOSIS: EFTER SKRIFTLIG ANVISNING. STYRKE: 20 MG/ML.
     Route: 010
     Dates: start: 20161110
  14. OSVAREN [Concomitant]
     Active Substance: CALCIUM ACETATE\MAGNESIUM CARBONATE
     Indication: HYPERPHOSPHATAEMIA
     Dosage: STYRKE: 435 + 235 MG.
     Route: 048
     Dates: start: 20170103
  15. KALEORID [Concomitant]
     Active Substance: POTASSIUM CHLORIDE
     Indication: MINERAL SUPPLEMENTATION
     Dosage: STYRKE: 750 MG.
     Route: 048
     Dates: start: 20150802
  16. METOCLOPRAMIDE. [Concomitant]
     Active Substance: METOCLOPRAMIDE
     Indication: NAUSEA
     Dosage: DOSIS: 1 TABLET VED BEHOV, H?JST 3 GANGE DAGLIG. STYRKE: 10 MG.
     Route: 048
  17. BISOPROLOL [Concomitant]
     Active Substance: BISOPROLOL
     Indication: PRODUCT USED FOR UNKNOWN INDICATION
     Dosage: STYRKE: 5 MG.
     Route: 048
     Dates: start: 20170723

REACTIONS (5)
  - Malaise [Recovered/Resolved]
  - Dyskinesia [Recovered/Resolved]
  - Aphasia [Recovered/Resolved]
  - Neurotoxicity [Unknown]
  - Confusional state [Recovered/Resolved]

NARRATIVE: CASE EVENT DATE: 201806
